FAERS Safety Report 24794145 (Version 1)
Quarter: 2024Q4

REPORT INFORMATION
  Report Type: Spontaneous
  Country: US (occurrence: None)
  Receive Date: 20241231
  Receipt Date: 20241231
  Transmission Date: 20250115
  Serious: Yes (Hospitalization)
  Sender: Public
  Company Number: None

PATIENT
  Age: 74 Year
  Sex: Female

DRUGS (2)
  1. TADALAFIL [Suspect]
     Active Substance: TADALAFIL
     Indication: Pulmonary arterial hypertension
     Dosage: FREQUENCY : DAILY;?
     Route: 048
     Dates: start: 202412
  2. TYVASO DPI [Suspect]
     Active Substance: TREPROSTINIL

REACTIONS (8)
  - Insomnia [None]
  - Headache [None]
  - Dyspnoea [None]
  - Gait disturbance [None]
  - Nausea [None]
  - Dyspepsia [None]
  - Cough [None]
  - Pulmonary oedema [None]

NARRATIVE: CASE EVENT DATE: 20241224
